FAERS Safety Report 6465506-2 (Version None)
Quarter: 2009Q4

REPORT INFORMATION
  Report Type: 
  Country: None (occurrence: None)
  Receive Date: 20091201
  Receipt Date: 20081118
  Transmission Date: 20100525
  Serious: No
  Sender: FDA-Public Use
  Company Number: US-AMGEN-KDL311613

PATIENT
  Sex: Female
  Weight: 97.6 kg

DRUGS (9)
  1. ENBREL [Suspect]
     Indication: RHEUMATOID ARTHRITIS
     Route: 058
     Dates: start: 20080916, end: 20081021
  2. PREDNISONE TAB [Concomitant]
     Dates: start: 20060101
  3. METOPROLOL [Concomitant]
  4. LASIX [Concomitant]
  5. MULTIPLE VITAMINS [Concomitant]
  6. AMBIEN [Concomitant]
  7. PHENOBARBITAL [Concomitant]
  8. VITAMIN E [Concomitant]
  9. CALCIUM [Concomitant]

REACTIONS (2)
  - INJECTION SITE HAEMATOMA [None]
  - INSOMNIA [None]
